FAERS Safety Report 7320603-4 (Version None)
Quarter: 2011Q1

REPORT INFORMATION
  Report Type: 
  Country: None (occurrence: None)
  Receive Date: 20110223
  Receipt Date: 20110223
  Transmission Date: 20110831
  Serious: Yes (Hospitalization, Disabling)
  Sender: FDA-Public Use
  Company Number: None

PATIENT
  Age: 23 Year
  Sex: Female
  Weight: 52.1637 kg

DRUGS (1)
  1. TERBUTALINE [Suspect]
     Indication: PREMATURE LABOUR
     Dosage: TERBUTALIN DAILY PO
     Route: 048
     Dates: start: 19901101, end: 19910129

REACTIONS (2)
  - SUPRAVENTRICULAR TACHYCARDIA [None]
  - ARRHYTHMIA [None]
